FAERS Safety Report 10291564 (Version 1)
Quarter: 2014Q3

REPORT INFORMATION
  Report Type: Spontaneous
  Country: LV (occurrence: LV)
  Receive Date: 20140710
  Receipt Date: 20140710
  Transmission Date: 20150326
  Serious: Yes (Hospitalization)
  Sender: FDA-Public Use
  Company Number: PHHY2014LV080873

PATIENT
  Age: 93 Year
  Sex: Female
  Weight: 85 kg

DRUGS (3)
  1. BERLIPRIL [Concomitant]
     Route: 048
  2. OSPAMOX [Suspect]
     Active Substance: AMOXICILLIN
     Dosage: 1000 MG, BID
     Route: 048
     Dates: start: 20140529, end: 20140530
  3. STUGERON [Concomitant]
     Active Substance: CINNARIZINE

REACTIONS (5)
  - Dyspnoea [Unknown]
  - Blood pressure decreased [Unknown]
  - Face oedema [Unknown]
  - Pruritus generalised [Unknown]
  - Rash generalised [Unknown]

NARRATIVE: CASE EVENT DATE: 20140530
